FAERS Safety Report 13942564 (Version 1)
Quarter: 2017Q3

REPORT INFORMATION
  Report Type: Not Available
  Country: None (occurrence: US)
  Receive Date: 20170906
  Receipt Date: 20170906
  Transmission Date: 20171127
  Serious: No
  Sender: FDA-Public Use
  Company Number: US-AKORN-66518

PATIENT
  Sex: Female

DRUGS (1)
  1. THERATEARS LUBRICANT [Suspect]
     Active Substance: CARBOXYMETHYLCELLULOSE SODIUM

REACTIONS (3)
  - Eyelids pruritus [None]
  - Ocular hyperaemia [Unknown]
  - Eye pain [Not Recovered/Not Resolved]
